FAERS Safety Report 8596349 (Version 3)
Quarter: 2014Q2

REPORT INFORMATION
  Report Type: Spontaneous
  Country: US (occurrence: US)
  Receive Date: 20120605
  Receipt Date: 20140415
  Transmission Date: 20141212
  Serious: Yes (Hospitalization)
  Sender: FDA-Public Use
  Company Number: US-ASTRAZENECA-2012SE35256

PATIENT
  Age: 670 Month
  Sex: Female
  Weight: 77.1 kg

DRUGS (28)
  1. NEXIUM [Suspect]
     Indication: ABDOMINAL DISCOMFORT
     Route: 048
  2. NEXIUM [Suspect]
     Indication: GASTROOESOPHAGEAL REFLUX DISEASE
     Route: 048
  3. NEXIUM [Suspect]
     Indication: ABDOMINAL DISCOMFORT
     Route: 048
     Dates: start: 2006
  4. NEXIUM [Suspect]
     Indication: GASTROOESOPHAGEAL REFLUX DISEASE
     Route: 048
     Dates: start: 2006
  5. NEXIUM [Suspect]
     Indication: ABDOMINAL DISCOMFORT
     Route: 048
     Dates: start: 20081105
  6. NEXIUM [Suspect]
     Indication: GASTROOESOPHAGEAL REFLUX DISEASE
     Route: 048
     Dates: start: 20081105
  7. NEXIUM [Suspect]
     Indication: ABDOMINAL DISCOMFORT
     Route: 048
     Dates: start: 20100524
  8. NEXIUM [Suspect]
     Indication: GASTROOESOPHAGEAL REFLUX DISEASE
     Route: 048
     Dates: start: 20100524
  9. CYMBALTA [Concomitant]
     Indication: BONE PAIN
     Dates: start: 2007
  10. CYMBALTA [Concomitant]
     Indication: BONE PAIN
     Dates: start: 2007
  11. HYDRAODUM [Concomitant]
     Indication: PAIN
     Dates: start: 2010
  12. HYDRAODUM [Concomitant]
     Indication: COUGH
     Dates: start: 2010
  13. HYDRAODUM [Concomitant]
     Indication: LOCAL SWELLING
     Dates: start: 2010
  14. BIOTIN [Concomitant]
     Indication: SKIN DISORDER
  15. BIOTIN [Concomitant]
     Indication: NAIL DISORDER
  16. HYDROCODONE [Concomitant]
  17. VITAMIN B-12 [Concomitant]
     Indication: ROUTINE HEALTH MAINTENANCE
  18. VITAMIN B-12 [Concomitant]
     Indication: ASTHENIA
  19. PROPOXYPHENE HCL [Concomitant]
  20. FLUOXETINE HCL [Concomitant]
  21. PREDNISONE [Concomitant]
     Dates: start: 20121023
  22. BENZONATATE [Concomitant]
     Dates: start: 20130507
  23. CITRACAL [Concomitant]
     Dosage: TWO TIMES DAILY
  24. FUROSEMIDE [Concomitant]
     Dates: start: 20100616
  25. IBUPROFEN [Concomitant]
  26. LEVAQUIN [Concomitant]
     Dates: start: 20080929
  27. ESTRADIOL [Concomitant]
  28. MELOXICAM [Concomitant]
     Dates: start: 20090708

REACTIONS (8)
  - Upper limb fracture [Unknown]
  - Ankle fracture [Unknown]
  - Foot fracture [Unknown]
  - Osteoporosis [Unknown]
  - Multiple fractures [Unknown]
  - Teeth brittle [Unknown]
  - Anxiety [Unknown]
  - Depression [Unknown]
